FAERS Safety Report 21838287 (Version 1)
Quarter: 2023Q1

REPORT INFORMATION
  Report Type: Spontaneous
  Country: US (occurrence: None)
  Receive Date: 20230107
  Receipt Date: 20230107
  Transmission Date: 20230418
  Serious: Yes (Life-Threatening, Hospitalization, Disabling)
  Sender: FDA-Public Use
  Company Number: None

PATIENT
  Age: 52 Year
  Sex: Female
  Weight: 77.4 kg

DRUGS (6)
  1. TICAGRELOR [Suspect]
     Active Substance: TICAGRELOR
     Indication: Acute myocardial infarction
     Dosage: FREQUENCY : TWICE A DAY;?
     Route: 048
     Dates: start: 20221221, end: 20221222
  2. PRASUGREL [Suspect]
     Active Substance: PRASUGREL
     Indication: Acute myocardial infarction
     Dosage: OTHER FREQUENCY : ONCE;?
     Route: 048
     Dates: start: 20221222, end: 20221222
  3. ASPIRIN [Concomitant]
     Active Substance: ASPIRIN
     Dates: start: 20221222, end: 20221222
  4. ATORVASTATIN [Concomitant]
     Active Substance: ATORVASTATIN
     Dates: start: 20221221, end: 20221230
  5. ENOXAPARIN [Concomitant]
     Active Substance: ENOXAPARIN
     Dates: start: 20221221, end: 20221222
  6. METOPROLOL TARTRATE [Concomitant]
     Active Substance: METOPROLOL TARTRATE
     Dates: start: 20221222, end: 20221230

REACTIONS (3)
  - Mental status changes [None]
  - Cerebellar haemorrhage [None]
  - Intraventricular haemorrhage [None]

NARRATIVE: CASE EVENT DATE: 20221222
